FAERS Safety Report 8977004 (Version 2)
Quarter: 2013Q4

REPORT INFORMATION
  Report Type: Spontaneous
  Country: US (occurrence: US)
  Receive Date: 20121220
  Receipt Date: 20131217
  Transmission Date: 20140711
  Serious: No
  Sender: FDA-Public Use
  Company Number: US-GLAXOSMITHKLINE-A0986975A

PATIENT
  Age: 65 Year
  Sex: Female

DRUGS (15)
  1. SORIATANE [Suspect]
     Indication: PSORIASIS
     Dosage: 25MG PER DAY
     Route: 048
     Dates: start: 201201
  2. OINTMENT [Concomitant]
  3. CLOBETASOL [Concomitant]
  4. BETAMETHASONE [Concomitant]
  5. METOPROLOL [Concomitant]
  6. LEVOTHYROXINE [Concomitant]
  7. DEXILANT [Concomitant]
  8. CALCIUM [Concomitant]
  9. VITAMIN B 12 [Concomitant]
  10. FISH OIL [Concomitant]
  11. LIDEX [Concomitant]
  12. VITAMINS [Concomitant]
  13. DIETARY SUPPLEMENT [Concomitant]
  14. FOLIC ACID [Concomitant]
  15. UV LIGHT [Concomitant]

REACTIONS (18)
  - Dry eye [Unknown]
  - Lip dry [Unknown]
  - Eyelash discolouration [Unknown]
  - Madarosis [Unknown]
  - Skin fissures [Unknown]
  - Rhinorrhoea [Unknown]
  - Chapped lips [Not Recovered/Not Resolved]
  - Bone pain [Not Recovered/Not Resolved]
  - Madarosis [Unknown]
  - Madarosis [Unknown]
  - Skin exfoliation [Unknown]
  - Nail disorder [Unknown]
  - Eyelids pruritus [Unknown]
  - Lacrimal disorder [Unknown]
  - Malaise [Unknown]
  - Psoriasis [Unknown]
  - Fatigue [Unknown]
  - Drug ineffective [Unknown]
